FAERS Safety Report 6969391-1 (Version None)
Quarter: 2010Q3

REPORT INFORMATION
  Report Type: 
  Country: None (occurrence: None)
  Receive Date: 20100902
  Receipt Date: 20100816
  Transmission Date: 20110219
  Serious: Yes (Other)
  Sender: FDA-Public Use
  Company Number: 2010003477

PATIENT
  Age: 74 Year
  Sex: Female
  Weight: 32 kg

DRUGS (10)
  1. ERLOTINIB HYDROCHLORIDE [Suspect]
     Indication: LUNG ADENOCARCINOMA
     Dosage: 150 MG, QD, ORAL
     Route: 048
     Dates: start: 20090108, end: 20090513
  2. MICARDIS [Concomitant]
  3. MIYARI BACTERIA (MIYARI BACTERIA) [Concomitant]
  4. DOXAZOSIN MESYLATE [Concomitant]
  5. LASIX [Concomitant]
  6. MINOMYCIN (MINCOMYCIN HYDROCHLORIDE) [Concomitant]
  7. FAMOTIDINE [Concomitant]
  8. NORVAC (AMLODIPINE BESILATE) [Concomitant]
  9. ZYRTEC [Concomitant]
  10. VERAPAMIL HYDROCHLORIDE [Concomitant]

REACTIONS (4)
  - CONJUNCTIVAL HYPERAEMIA [None]
  - ERYTHEMA OF EYELID [None]
  - PURPURA [None]
  - SKIN OEDEMA [None]
